FAERS Safety Report 20022122 (Version 16)
Quarter: 2024Q3

REPORT INFORMATION
  Report Type: Spontaneous
  Country: BE (occurrence: BE)
  Receive Date: 20211102
  Receipt Date: 20240930
  Transmission Date: 20241017
  Serious: Yes (Hospitalization, Other)
  Sender: CELLTRION
  Company Number: BE-CELLTRION INC.-2021BE014623

PATIENT

DRUGS (72)
  1. RITUXIMAB [Suspect]
     Active Substance: RITUXIMAB
     Indication: Diffuse large B-cell lymphoma stage III
     Dosage: 375 MG/M2, SINGLE, CONCENTRATE FOR SOLUTION FOR INJECTION
     Route: 042
     Dates: start: 20210804, end: 20210804
  2. RITUXIMAB [Suspect]
     Active Substance: RITUXIMAB
     Dosage: SINGLE / REGIMEN 1
     Route: 042
     Dates: start: 20210804, end: 20210804
  3. CARBOPLATIN [Suspect]
     Active Substance: CARBOPLATIN
     Indication: Diffuse large B-cell lymphoma stage III
     Dosage: REGIMEN 1
     Route: 042
  4. CARBOPLATIN [Suspect]
     Active Substance: CARBOPLATIN
     Dosage: 375 MG, WEEKLY/ REGIMEN 1
     Route: 042
     Dates: start: 20210804, end: 20210804
  5. CYTARABINE [Suspect]
     Active Substance: CYTARABINE
     Indication: Diffuse large B-cell lymphoma stage III
     Dosage: 2000 MG/M2, EVERY 12 HOURS (Q12H) / REGIMEN 1
     Route: 042
     Dates: start: 20210804, end: 20210804
  6. CYTARABINE [Suspect]
     Active Substance: CYTARABINE
     Dosage: 2000 MG/M2, EVERY 12 HOURS
     Route: 042
     Dates: start: 20210804, end: 20210804
  7. CYTARABINE [Suspect]
     Active Substance: CYTARABINE
     Dosage: 2000 MG/M2, SINGLE / REGIMEN 1
     Route: 042
     Dates: start: 20210805, end: 20210805
  8. CYTARABINE [Suspect]
     Active Substance: CYTARABINE
     Dosage: 2000 MG/M2, EVERY 12 HOURS, REGIMEN 1, Q12H
     Route: 042
     Dates: start: 20210804, end: 20210805
  9. CYTARABINE [Suspect]
     Active Substance: CYTARABINE
     Dosage: 2000 MG/M2, Q12H, REGIMEN 1
     Route: 042
     Dates: start: 20210804, end: 20210805
  10. CYTARABINE [Suspect]
     Active Substance: CYTARABINE
     Indication: Diffuse large B-cell lymphoma stage III
     Dosage: 2000 MG/M2, SINGLE
     Route: 042
     Dates: start: 20210805, end: 20210805
  11. CYTARABINE [Suspect]
     Active Substance: CYTARABINE
     Dosage: 2000 MG/M2 Q12H
     Route: 042
     Dates: start: 20210804, end: 20210804
  12. DEXAMETHASONE [Suspect]
     Active Substance: DEXAMETHASONE
     Indication: Diffuse large B-cell lymphoma stage III
     Dosage: 40 MG, 1X/DAY, SOLUTION FOR INJECTION/INFUSION / REGIMEN 1
     Route: 042
     Dates: start: 20210804, end: 20210807
  13. DEXAMETHASONE SODIUM PHOSPHATE [Suspect]
     Active Substance: DEXAMETHASONE PHOSPHATE\DEXAMETHASONE SODIUM PHOSPHATE
     Indication: Diffuse large B-cell lymphoma stage III
     Dosage: 40 MG, 1X/DAY, SOLUTION FOR INJECTION/INFUSION
     Route: 042
     Dates: start: 20210804, end: 20210807
  14. EPCORITAMAB [Suspect]
     Active Substance: EPCORITAMAB
     Indication: Diffuse large B-cell lymphoma stage III
     Dosage: PRIMING DOSE 0.16 MG, SINGLE, DUOBODY-CD3XCD20, REGIMEN1
     Route: 058
     Dates: start: 20210804, end: 20210804
  15. EPCORITAMAB [Suspect]
     Active Substance: EPCORITAMAB
     Dosage: INTERMEDIATE DOSE: 0.8 MG, SINGLE, DUOBODY-CD3XCD20, REGIMEN1
     Route: 058
     Dates: start: 20210811, end: 20210811
  16. EPCORITAMAB [Suspect]
     Active Substance: EPCORITAMAB
     Dosage: FULL DOSE 48 MG, WEEKLY DUOBODY-CD3XCD20, CONCENTRATE FOR SOLUTION FOR INJECTION/ REGIMEN 1
     Route: 058
     Dates: start: 20210819, end: 20210819
  17. OXALIPLATIN [Suspect]
     Active Substance: OXALIPLATIN
     Indication: Diffuse large B-cell lymphoma stage III
     Dosage: UNK
     Route: 042
  18. ACYCLOVIR [Concomitant]
     Active Substance: ACYCLOVIR
     Dosage: UNK
     Dates: start: 20210721
  19. FEBUXOSTAT [Concomitant]
     Active Substance: FEBUXOSTAT
     Dosage: UNK
     Dates: start: 20201004
  20. AMOXICILLIN\CLAVULANATE POTASSIUM [Concomitant]
     Active Substance: AMOXICILLIN\CLAVULANATE POTASSIUM
     Dosage: UNK
     Dates: start: 20210819, end: 20210822
  21. BACTRIM [Concomitant]
     Active Substance: SULFAMETHOXAZOLE\TRIMETHOPRIM
     Dosage: UNK
     Dates: start: 20210718, end: 20210920
  22. BACTRIM [Concomitant]
     Active Substance: SULFAMETHOXAZOLE\TRIMETHOPRIM
     Dosage: UNK
     Dates: start: 20210718
  23. BUMETANIDE [Concomitant]
     Active Substance: BUMETANIDE
     Dosage: UNK
     Dates: start: 20210806, end: 20210808
  24. CALCIUM ACETATE;MAGNESIUM CARBONATE [Concomitant]
     Dosage: UNK
     Dates: start: 20210807, end: 20210809
  25. ENOXAPARIN SODIUM [Concomitant]
     Active Substance: ENOXAPARIN SODIUM
     Dosage: UNK
     Dates: start: 20210719, end: 20210729
  26. COLCHICINE [Concomitant]
     Active Substance: COLCHICINE
     Dosage: UNK
     Dates: start: 20210712, end: 20210804
  27. DAFALGAN [Concomitant]
     Active Substance: ACETAMINOPHEN
     Dosage: UNK
     Dates: start: 20210718, end: 20210804
  28. DEXAMETHASONE [Concomitant]
     Active Substance: DEXAMETHASONE
     Dosage: UNK
     Dates: start: 20210804, end: 20210917
  29. DEXERYL [CHLORPHENAMINE MALEATE;DEXTROMETHORPHAN HYDROBROMIDE;GUAIFENE [Concomitant]
     Dosage: UNK
     Dates: start: 20210810, end: 20210813
  30. CHOLECALCIFEROL [Concomitant]
     Active Substance: CHOLECALCIFEROL
     Dosage: UNK
     Dates: start: 20210718
  31. ESOMEPRAZOLE [Concomitant]
     Active Substance: ESOMEPRAZOLE
     Dosage: UNK
     Dates: start: 20210718
  32. FASTURTEC [Concomitant]
     Active Substance: RASBURICASE
     Dosage: UNK
     Dates: start: 20210804, end: 20210812
  33. FLUCONAZOLE [Concomitant]
     Active Substance: FLUCONAZOLE
     Dosage: UNK
     Dates: start: 20210804, end: 20211004
  34. FLUCONAZOLE [Concomitant]
     Active Substance: FLUCONAZOLE
     Dosage: UNK
     Dates: start: 20210804
  35. INSULIN HUMAN [Concomitant]
     Active Substance: INSULIN HUMAN
     Dosage: UNK
     Dates: start: 20210805, end: 20210809
  36. LASIX [Concomitant]
     Active Substance: FUROSEMIDE
     Dosage: UNK
     Dates: start: 20210805, end: 20210811
  37. FUROSEMIDE [Concomitant]
     Active Substance: FUROSEMIDE
     Dosage: UNK
     Dates: start: 20210805, end: 20210811
  38. ALIZAPRIDE [Concomitant]
     Active Substance: ALIZAPRIDE
     Dosage: UNK
     Dates: start: 20210804, end: 20210804
  39. LIPEGFILGRASTIM [Concomitant]
     Active Substance: LIPEGFILGRASTIM
     Dosage: UNK
     Dates: start: 20210805, end: 20210805
  40. MEDROL [Concomitant]
     Active Substance: METHYLPREDNISOLONE
     Dosage: 80 MG
     Route: 048
     Dates: start: 20210812, end: 202108
  41. MONOFREE DEXAMETHASON [DEXAMETHASONE] [Concomitant]
     Dosage: 0.4 ML
     Dates: start: 20210804
  42. MONOPRONT [Concomitant]
     Dosage: UNK
     Dates: start: 20210719, end: 20210916
  43. LATANOPROST [Concomitant]
     Active Substance: LATANOPROST
     Dosage: UNK
     Dates: start: 20210719, end: 20210916
  44. MOVICOL [Concomitant]
     Active Substance: POLYETHYLENE GLYCOL 3350\POTASSIUM CHLORIDE\SODIUM BICARBONATE\SODIUM CHLORIDE
     Dosage: UNK
     Dates: start: 20210810, end: 20210827
  45. MOVICOL [Concomitant]
     Active Substance: POLYETHYLENE GLYCOL 3350\POTASSIUM CHLORIDE\SODIUM BICARBONATE\SODIUM CHLORIDE
     Dosage: UNK
     Dates: start: 20210810
  46. MOXONIDINE [Concomitant]
     Active Substance: MOXONIDINE
     Dosage: UNK
     Dates: start: 20210719, end: 20210827
  47. OMEPRAZOLE [Concomitant]
     Active Substance: OMEPRAZOLE
     Dosage: UNK
     Dates: start: 20210719
  48. ONDANSETRON [Concomitant]
     Active Substance: ONDANSETRON
     Dosage: UNK
     Dates: start: 20210804
  49. ACETAMINOPHEN [Concomitant]
     Active Substance: ACETAMINOPHEN
     Dosage: 1 G
     Route: 048
     Dates: start: 20210811, end: 20210811
  50. ACETAMINOPHEN [Concomitant]
     Active Substance: ACETAMINOPHEN
     Dosage: 1 G
     Route: 048
     Dates: start: 20210811, end: 20210819
  51. PIPERACILLIN AND TAZOBACTAM [Concomitant]
     Active Substance: PIPERACILLIN SODIUM\TAZOBACTAM SODIUM
     Dosage: UNK
     Dates: start: 20210816, end: 20210819
  52. AMITRIPTYLINE HYDROCHLORIDE [Concomitant]
     Active Substance: AMITRIPTYLINE HYDROCHLORIDE
     Dosage: UNK
     Dates: start: 20210729, end: 20210927
  53. RENEPHO [Concomitant]
     Dosage: UNK
     Dates: start: 20210807, end: 20210809
  54. SOLU-MEDROL [Concomitant]
     Active Substance: METHYLPREDNISOLONE SODIUM SUCCINATE
     Indication: Prophylaxis
     Dosage: 80 MG
     Route: 042
     Dates: start: 20210811, end: 20210811
  55. SOLU-MEDROL [Concomitant]
     Active Substance: METHYLPREDNISOLONE SODIUM SUCCINATE
     Dosage: 80 MG
     Route: 042
     Dates: start: 20210811, end: 20210822
  56. SOLU-MEDROL [Concomitant]
     Active Substance: METHYLPREDNISOLONE SODIUM SUCCINATE
     Dosage: 80 MG
     Route: 048
     Dates: start: 20210821, end: 20210822
  57. SOLU-MEDROL [Concomitant]
     Active Substance: METHYLPREDNISOLONE SODIUM SUCCINATE
     Dosage: 125 MG
     Route: 042
     Dates: start: 20210819, end: 20210821
  58. SOLU-MEDROL [Concomitant]
     Active Substance: METHYLPREDNISOLONE SODIUM SUCCINATE
     Dosage: 125 MG (125 UNK)
     Dates: start: 20210819, end: 20210820
  59. CLEMASTINE FUMARATE [Concomitant]
     Active Substance: CLEMASTINE FUMARATE
     Dosage: 2 MG
     Route: 042
     Dates: start: 20210811, end: 20210811
  60. CLEMASTINE FUMARATE [Concomitant]
     Active Substance: CLEMASTINE FUMARATE
     Dosage: UNK
     Dates: start: 20210819
  61. CLEMASTINE FUMARATE [Concomitant]
     Active Substance: CLEMASTINE FUMARATE
     Dosage: 2 MG
     Route: 042
     Dates: start: 20210811, end: 20210819
  62. LORAZEPAM [Concomitant]
     Active Substance: LORAZEPAM
     Dosage: UNK
     Dates: start: 20210804, end: 20210804
  63. FILGRASTIM [Concomitant]
     Active Substance: FILGRASTIM
     Dosage: UNK
     Dates: start: 20210726, end: 20210804
  64. HYALURONATE SODIUM\TREHALOSE [Concomitant]
     Active Substance: HYALURONATE SODIUM\TREHALOSE
     Dosage: UNK
     Dates: start: 20210804, end: 20210917
  65. HYALURONATE SODIUM\TREHALOSE [Concomitant]
     Active Substance: HYALURONATE SODIUM\TREHALOSE
     Dosage: UNK
     Dates: start: 20210804
  66. TRAMADOL HYDROCHLORIDE [Concomitant]
     Active Substance: TRAMADOL HYDROCHLORIDE
     Indication: Cholecystitis
     Dosage: UNK
     Dates: start: 20210718, end: 20211029
  67. TRAMADOL HYDROCHLORIDE [Concomitant]
     Active Substance: TRAMADOL HYDROCHLORIDE
     Dosage: UNK
     Dates: start: 20210718
  68. VITAMIN A PALMITATE [Concomitant]
     Active Substance: VITAMIN A PALMITATE
     Dosage: UNK
     Dates: start: 20210805, end: 20210916
  69. VITAMIN A PALMITATE [Concomitant]
     Active Substance: VITAMIN A PALMITATE
     Dosage: UNK
     Dates: start: 20210805
  70. XALATAN [Concomitant]
     Active Substance: LATANOPROST
     Dosage: 0.005 %
     Dates: start: 20210718
  71. ZOFRAN [Concomitant]
     Active Substance: ONDANSETRON HYDROCHLORIDE
     Dosage: UNK
     Dates: start: 20210808, end: 20210810
  72. LORAZEPAM [Concomitant]
     Active Substance: LORAZEPAM
     Dosage: UNK
     Dates: start: 20210804, end: 20210804

REACTIONS (6)
  - Heart failure with reduced ejection fraction [Recovered/Resolved]
  - Acute kidney injury [Recovered/Resolved]
  - Cardiac failure [Recovered/Resolved]
  - Coronary artery disease [Recovered/Resolved]
  - Periodontitis [Recovered/Resolved]
  - Off label use [Unknown]

NARRATIVE: CASE EVENT DATE: 20210807
